FAERS Safety Report 6807541-8 (Version None)
Quarter: 2010Q2

REPORT INFORMATION
  Report Type: 
  Country: None (occurrence: None)
  Receive Date: 20100629
  Receipt Date: 20081009
  Transmission Date: 20101027
  Serious: No
  Sender: FDA-Public Use
  Company Number: US-PFIZER INC-2008085224

PATIENT
  Sex: Female
  Weight: 56.7 kg

DRUGS (4)
  1. ZYVOX [Suspect]
     Indication: STAPHYLOCOCCAL INFECTION
     Route: 048
     Dates: start: 20081007
  2. BACTRIM [Concomitant]
  3. ANTIDIARRHOEAL MICROORGANISMS [Concomitant]
  4. ANALGESICS [Concomitant]

REACTIONS (4)
  - ARTHRALGIA [None]
  - ASTHENIA [None]
  - MALAISE [None]
  - NAUSEA [None]
